FAERS Safety Report 17138951 (Version 1)
Quarter: 2019Q4

REPORT INFORMATION
  Report Type: Spontaneous
  Country: US (occurrence: US)
  Receive Date: 20191211
  Receipt Date: 20191211
  Transmission Date: 20200122
  Serious: No
  Sender: FDA-Public Use
  Company Number: US-UCBSA-2016018797

PATIENT
  Sex: Female
  Weight: 67 kg

DRUGS (14)
  1. LEVOCARNITINE. [Concomitant]
     Active Substance: LEVOCARNITINE
     Indication: EPILEPSY
  2. KEPPRA [Suspect]
     Active Substance: LEVETIRACETAM
     Indication: PETIT MAL EPILEPSY
     Dosage: 2000 MG, 2X/DAY (BID)
     Route: 048
     Dates: start: 2012
  3. VITAMINS NOS [Concomitant]
     Active Substance: VITAMINS
     Indication: PROPHYLAXIS
     Dosage: UNKNOWN DOSE
  4. DEPAKOTE [Concomitant]
     Active Substance: DIVALPROEX SODIUM
     Indication: SEIZURE
     Dosage: 1250MG DAILY
     Route: 048
  5. M.C.T. OIL [Concomitant]
     Indication: SUPPLEMENTATION THERAPY
     Dosage: (4 OZ DAILY)AT 2-3 YEARS OF AGE
     Route: 048
     Dates: start: 2012
  6. LORAZEPAM. [Concomitant]
     Active Substance: LORAZEPAM
     Indication: EPILEPSY
     Dosage: 1 MG, AS NEEDED (PRN)
     Route: 048
  7. MIDAZOLAM [Concomitant]
     Active Substance: MIDAZOLAM HYDROCHLORIDE
     Indication: EPILEPSY
     Dosage: 10 MG, AS NEEDED (PRN), INTRANASAL
  8. LAMOTRIGINE. [Concomitant]
     Active Substance: LAMOTRIGINE
     Indication: EPILEPSY
     Dosage: 50 MG, 2X/DAY (BID)
     Route: 048
     Dates: start: 20140724
  9. VITAMIN D [Concomitant]
     Active Substance: VITAMIN D NOS
     Indication: PRODUCT USED FOR UNKNOWN INDICATION
     Dosage: 2000 MG ICU DAILY SINCE 2-3 YEARS OF AGE
     Dates: start: 2000
  10. LEVOCARNITINE. [Concomitant]
     Active Substance: LEVOCARNITINE
     Indication: CARNITINE DEFICIENCY
     Dosage: 330 MG, 2X/DAY (BID)
     Dates: start: 2012
  11. LAMICTAL [Concomitant]
     Active Substance: LAMOTRIGINE
     Indication: SEIZURE
     Dosage: 100 MG DAILY SINCE 2-3 YEARS OF AGE
     Dates: start: 2012
  12. KEPPRA [Suspect]
     Active Substance: LEVETIRACETAM
     Indication: PETIT MAL EPILEPSY
     Dosage: (1500MG AM, 1500MG 6:30PM, 1000MG AT BED TIME), 3X/DAY (TID)
     Route: 048
     Dates: start: 2011
  13. KEPPRA [Suspect]
     Active Substance: LEVETIRACETAM
     Indication: GENERALISED TONIC-CLONIC SEIZURE
  14. FOLIC ACID. [Concomitant]
     Active Substance: FOLIC ACID
     Indication: PRODUCT USED FOR UNKNOWN INDICATION
     Dosage: 1 MG, ONCE DAILY (QD) SINCE 2-3 YEARS
     Dates: start: 2000

REACTIONS (4)
  - Epilepsy [Not Recovered/Not Resolved]
  - Off label use [Unknown]
  - Haematuria [Not Recovered/Not Resolved]
  - Overdose [Unknown]

NARRATIVE: CASE EVENT DATE: 2011
